FAERS Safety Report 25095728 (Version 1)
Quarter: 2025Q1

REPORT INFORMATION
  Report Type: Spontaneous
  Country: US (occurrence: US)
  Receive Date: 20250319
  Receipt Date: 20250319
  Transmission Date: 20250409
  Serious: No
  Sender: MYLAN
  Company Number: US-MYLANLABS-2025M1017308

PATIENT
  Sex: Male
  Weight: 63.5 kg

DRUGS (1)
  1. ALPRAZOLAM [Suspect]
     Active Substance: ALPRAZOLAM
     Indication: Depression

REACTIONS (11)
  - Dry throat [Recovering/Resolving]
  - Abdominal discomfort [Recovering/Resolving]
  - Feeling of body temperature change [Unknown]
  - Feeling abnormal [Unknown]
  - Mood altered [Unknown]
  - Anger [Unknown]
  - Insomnia [Unknown]
  - Therapeutic product effect decreased [Unknown]
  - Product substitution issue [Unknown]
  - Off label use [Unknown]
  - Wrong technique in product usage process [Unknown]
